FAERS Safety Report 9788233 (Version 1)
Quarter: 2013Q4

REPORT INFORMATION
  Report Type: Spontaneous
  Country: US (occurrence: None)
  Receive Date: 20131227
  Receipt Date: 20131227
  Transmission Date: 20140711
  Serious: Yes (Hospitalization)
  Sender: FDA-Public Use
  Company Number: None

PATIENT
  Age: 79 Year
  Sex: Female
  Weight: 109.2 kg

DRUGS (16)
  1. COUMADIN [Suspect]
     Indication: ATRIAL FIBRILLATION
     Dosage: 2.5MG, SSTTH, PO
     Route: 048
  2. ADVAIR [Concomitant]
  3. CPAP/BIPAP [Concomitant]
  4. CARVEDILOL [Concomitant]
  5. MVI [Concomitant]
  6. CHOLECALCIFEROL [Concomitant]
  7. LASIX [Concomitant]
  8. IBANDRONATE [Concomitant]
  9. SYNTHROID [Concomitant]
  10. LOSARTAN [Concomitant]
  11. OSCAL [Concomitant]
  12. KCL [Concomitant]
  13. SENOKOT [Concomitant]
  14. SPIRIVA [Concomitant]
  15. TIMOPTIC [Concomitant]
  16. XALATAN [Concomitant]

REACTIONS (3)
  - Syncope [None]
  - Cardiac arrest [None]
  - International normalised ratio increased [None]
